FAERS Safety Report 25438730 (Version 1)
Quarter: 2025Q2

REPORT INFORMATION
  Report Type: Spontaneous
  Country: CA (occurrence: CA)
  Receive Date: 20250616
  Receipt Date: 20250616
  Transmission Date: 20250716
  Serious: Yes (Hospitalization, Other)
  Sender: REGENERON
  Company Number: CA-REGENERON PHARMACEUTICALS, INC.-2025-095441

PATIENT
  Age: 70 Year
  Sex: Male

DRUGS (5)
  1. CEMIPLIMAB [Suspect]
     Active Substance: CEMIPLIMAB
     Indication: Squamous cell carcinoma
     Dosage: 350 MG, Q3W
     Route: 042
     Dates: start: 2022
  2. PACLITAXEL [Suspect]
     Active Substance: PACLITAXEL
     Indication: Product used for unknown indication
     Dosage: 65 MG/M2 + 1.5 AUC
     Route: 042
     Dates: start: 202303
  3. CARBOPLATIN [Suspect]
     Active Substance: CARBOPLATIN
     Indication: Product used for unknown indication
     Dosage: 65 MG/M2 + 1.5 AUC
     Route: 042
     Dates: start: 202303
  4. CISPLATIN [Concomitant]
     Active Substance: CISPLATIN
     Indication: Neoadjuvant therapy
     Dosage: 75 MG/M2, Q3W
     Route: 042
     Dates: start: 2022
  5. DOCETAXEL [Concomitant]
     Active Substance: DOCETAXEL
     Indication: Neoadjuvant therapy
     Dosage: 75 MG/M2, Q3W
     Route: 042
     Dates: start: 2022

REACTIONS (6)
  - Febrile neutropenia [Unknown]
  - Acute kidney injury [Unknown]
  - COVID-19 [Unknown]
  - Off label use [Unknown]
  - Dermatitis [Recovered/Resolved]
  - Disease progression [Unknown]

NARRATIVE: CASE EVENT DATE: 20220101
